FAERS Safety Report 7646003-5 (Version None)
Quarter: 2011Q3

REPORT INFORMATION
  Report Type: 
  Country: None (occurrence: None)
  Receive Date: 20110731
  Receipt Date: 20110726
  Transmission Date: 20111222
  Serious: No
  Sender: FDA-Public Use
  Company Number: JP-B.I. PHARMACEUTICALS,INC./RIDGEFIELD-2011-BP-17359NB

PATIENT
  Sex: Male

DRUGS (7)
  1. ALLOPURINOL [Concomitant]
     Indication: GOUT
     Dosage: 100 MG
     Route: 048
  2. TORSEMIDE [Concomitant]
     Indication: CARDIAC FAILURE
     Dosage: 2 MG
     Route: 048
  3. HOKUNALIN: TAPE [Concomitant]
     Indication: EMPHYSEMA
     Dosage: 2 MG
     Route: 062
  4. SPIRIVA [Concomitant]
     Indication: EMPHYSEMA
     Dosage: 18 MCG
     Route: 055
  5. OLMESARTAN MEDOXOMIL [Concomitant]
     Indication: CARDIAC FAILURE
     Dosage: 10 MG
     Route: 048
  6. FRANDOL S [Concomitant]
     Indication: CARDIAC FAILURE
     Dosage: 40 MG
     Route: 062
  7. PRADAXA [Suspect]
     Indication: ATRIAL FIBRILLATION
     Dosage: 220 MG
     Route: 048
     Dates: start: 20110414, end: 20110601

REACTIONS (2)
  - MALAISE [None]
  - HEPATIC FUNCTION ABNORMAL [None]
